FAERS Safety Report 10757871 (Version 1)
Quarter: 2015Q1

REPORT INFORMATION
  Report Type: Spontaneous
  Country: FR (occurrence: FR)
  Receive Date: 20150203
  Receipt Date: 20150203
  Transmission Date: 20150721
  Serious: Yes (Hospitalization)
  Sender: FDA-Public Use
  Company Number: FR-SA-2015SA009278

PATIENT
  Age: 73 Year
  Sex: Female
  Weight: 89 kg

DRUGS (8)
  1. LEVOTHYROX [Concomitant]
     Active Substance: LEVOTHYROXINE
     Indication: HYPOTHYROIDISM
     Dosage: STRENGTH: 75 MCG
     Route: 048
  2. INEXIUM [Concomitant]
     Active Substance: ESOMEPRAZOLE
     Indication: GASTROOESOPHAGEAL REFLUX DISEASE
     Dosage: 40 MG TABLET
     Route: 048
  3. CELLCEPT [Concomitant]
     Active Substance: MYCOPHENOLATE MOFETIL\MYCOPHENOLATE MOFETIL HYDROCHLORIDE
     Route: 048
  4. LASILIX [Suspect]
     Active Substance: FUROSEMIDE
     Route: 048
  5. CORTANCYL [Concomitant]
     Active Substance: PREDNISONE
     Route: 048
  6. XATRAL LP [Concomitant]
     Active Substance: ALFUZOSIN
     Indication: BLADDER CATHETERISATION
     Dosage: 10 MG EXTENDED TABLET
     Route: 048
  7. ARANESP [Concomitant]
     Active Substance: DARBEPOETIN ALFA
     Indication: ANAEMIA
     Dosage: 40 MCG/ EVERY WEEK
  8. CALCIDIA [Concomitant]
     Active Substance: CALCIUM POLYCARBOPHIL
     Indication: HYPOCALCAEMIA
     Route: 048

REACTIONS (1)
  - Acute kidney injury [Recovered/Resolved]

NARRATIVE: CASE EVENT DATE: 20141115
